FAERS Safety Report 23107396 (Version 2)
Quarter: 2025Q2

REPORT INFORMATION
  Report Type: Spontaneous
  Country: CA (occurrence: CA)
  Receive Date: 20231026
  Receipt Date: 20250611
  Transmission Date: 20250717
  Serious: Yes (Other)
  Sender: NOVO NORDISK
  Company Number: CA-NOVOPROD-1102805

PATIENT
  Age: 55 Year
  Sex: Female
  Weight: 108.5 kg

DRUGS (1)
  1. RYBELSUS [Suspect]
     Active Substance: SEMAGLUTIDE
     Indication: Obesity
     Dosage: 3 MG, QD
     Dates: start: 20230509, end: 20230524

REACTIONS (3)
  - Diplopia [Recovered/Resolved]
  - Nausea [Recovered/Resolved]
  - Product use in unapproved indication [Recovered/Resolved]

NARRATIVE: CASE EVENT DATE: 20230509
